FAERS Safety Report 8516595-2 (Version None)
Quarter: 2012Q3

REPORT INFORMATION
  Report Type: 
  Country: None (occurrence: None)
  Receive Date: 20120712
  Receipt Date: 20120712
  Transmission Date: 20120928
  Serious: Yes (Death)
  Sender: FDA-Public Use
  Company Number: None

PATIENT
  Age: 16 Year
  Sex: Male
  Weight: 48.9885 kg

DRUGS (1)
  1. FLECAINIDE NOT SURE NOT SURE [Suspect]
     Indication: CARDIAC DISORDER
     Dates: start: 20091203, end: 20100105

REACTIONS (1)
  - DEATH [None]
